FAERS Safety Report 7023104-6 (Version None)
Quarter: 2010Q3

REPORT INFORMATION
  Report Type: 
  Country: None (occurrence: None)
  Receive Date: 20100930
  Receipt Date: 20100921
  Transmission Date: 20110219
  Serious: Yes (Other)
  Sender: FDA-Public Use
  Company Number: PHHY2010BR63314

PATIENT
  Sex: Female

DRUGS (5)
  1. DIOVAN HCT [Suspect]
     Dosage: 1 DF, (320/12.5 MG)
  2. DIOVAN HCT [Suspect]
     Dosage: 1 DF, (160/12.5 MG)
  3. METFORMIN [Concomitant]
     Indication: DIABETES MELLITUS
     Dosage: 1 DF, TID
     Route: 048
  4. PURAN T4 [Concomitant]
     Indication: HYPERTHYROIDISM
     Dosage: 1 DF, DAILY
     Route: 048
  5. ANTIBIOTICS [Concomitant]
     Dosage: UNK

REACTIONS (5)
  - BLOOD PRESSURE INADEQUATELY CONTROLLED [None]
  - BLOOD PRESSURE INCREASED [None]
  - BRONCHITIS [None]
  - HYPERTHYROIDISM [None]
  - SWELLING [None]
